FAERS Safety Report 7465224-8 (Version None)
Quarter: 2011Q2

REPORT INFORMATION
  Report Type: 
  Country: None (occurrence: None)
  Receive Date: 20110509
  Receipt Date: 20110503
  Transmission Date: 20111010
  Serious: Yes (Life-Threatening, Hospitalization, Disabling, Other)
  Sender: FDA-Public Use
  Company Number: PHFR2011GB02575

PATIENT
  Sex: Male
  Weight: 60 kg

DRUGS (4)
  1. CLOZARIL [Suspect]
     Indication: PARKINSON'S DISEASE
     Dosage: 37.5 MG
     Route: 048
     Dates: start: 20090108, end: 20110301
  2. CLOZARIL [Suspect]
     Indication: PSYCHOTIC DISORDER
  3. MADOPAR [Concomitant]
     Indication: PARKINSON'S DISEASE
     Dosage: UNK
     Route: 048
     Dates: start: 20110101
  4. LAXILO [Concomitant]
     Indication: CONSTIPATION
     Dosage: UNK
     Route: 048
     Dates: start: 20100101

REACTIONS (8)
  - MOBILITY DECREASED [None]
  - CIRCULATORY COLLAPSE [None]
  - DEHYDRATION [None]
  - UNRESPONSIVE TO STIMULI [None]
  - LOWER RESPIRATORY TRACT INFECTION [None]
  - DELUSION [None]
  - FLUID INTAKE REDUCED [None]
  - SOMNOLENCE [None]
